FAERS Safety Report 10395521 (Version 1)
Quarter: 2014Q3

REPORT INFORMATION
  Report Type: Spontaneous
  Country: US (occurrence: None)
  Receive Date: 20140819
  Receipt Date: 20140819
  Transmission Date: 20150326
  Serious: Yes (Hospitalization)
  Sender: FDA-Public Use
  Company Number: None

PATIENT
  Age: 55 Year
  Sex: Male
  Weight: 61.6 kg

DRUGS (1)
  1. CISPLATIN. [Suspect]
     Active Substance: CISPLATIN
     Dosage: PATIENT WAS TAKEN OFF STUDY ON 7/29/14

REACTIONS (5)
  - Febrile neutropenia [None]
  - Sepsis [None]
  - Colitis [None]
  - Nausea [None]
  - Clostridium difficile infection [None]

NARRATIVE: CASE EVENT DATE: 20140808
